FAERS Safety Report 6694535-9 (Version None)
Quarter: 2010Q2

REPORT INFORMATION
  Report Type: 
  Country: None (occurrence: None)
  Receive Date: 20100423
  Receipt Date: 20100416
  Transmission Date: 20101027
  Serious: Yes (Hospitalization)
  Sender: FDA-Public Use
  Company Number: US-CEPHALON-2010002257

PATIENT
  Sex: Female

DRUGS (4)
  1. PROVIGIL [Suspect]
     Indication: NARCOLEPSY
     Route: 048
     Dates: start: 20100101, end: 20100401
  2. PAXIL [Concomitant]
  3. PREDNISONE [Concomitant]
  4. SUPPLEMENTS [Concomitant]

REACTIONS (4)
  - DRUG TOLERANCE [None]
  - FALL [None]
  - HEAD INJURY [None]
  - NERVE INJURY [None]
